FAERS Safety Report 20867632 (Version 1)
Quarter: 2022Q2

REPORT INFORMATION
  Report Type: Report from Study
  Country: ES (occurrence: ES)
  Receive Date: 20220524
  Receipt Date: 20220524
  Transmission Date: 20220721
  Serious: Yes (Disabling, Other)
  Sender: FDA-Public Use
  Company Number: ES-GE HEALTHCARE-2022CSU003053

PATIENT
  Sex: Female

DRUGS (1)
  1. SODIUM IODIDE I-131 [Suspect]
     Active Substance: SODIUM IODIDE I-131
     Indication: Thyroid cancer
     Route: 065

REACTIONS (3)
  - Ovarian failure [Not Recovered/Not Resolved]
  - Abortion [Recovered/Resolved]
  - Assisted reproductive technology [Not Recovered/Not Resolved]
